FAERS Safety Report 16819706 (Version 6)
Quarter: 2021Q3

REPORT INFORMATION
  Report Type: Spontaneous
  Country: BE (occurrence: BE)
  Receive Date: 20190917
  Receipt Date: 20210813
  Transmission Date: 20211014
  Serious: Yes (Life-Threatening, Hospitalization, Congenital Anomaly, Other)
  Sender: FDA-Public Use
  Company Number: PHHY2019BE216088

PATIENT
  Age: 25 Year
  Sex: Female

DRUGS (12)
  1. PROPOFOL. [Suspect]
     Active Substance: PROPOFOL
     Indication: SEDATION
     Dosage: UNK
     Route: 065
  2. PROPOFOL. [Suspect]
     Active Substance: PROPOFOL
     Indication: ANAESTHESIA
  3. PARACETAMOL [Suspect]
     Active Substance: ACETAMINOPHEN
     Indication: ANALGESIC THERAPY
     Dosage: UNK
     Route: 065
  4. PARACETAMOL [Suspect]
     Active Substance: ACETAMINOPHEN
     Indication: PAIN
  5. TRAMADOL HYDROCHLORIDE. [Suspect]
     Active Substance: TRAMADOL HYDROCHLORIDE
     Indication: ANALGESIC THERAPY
     Dosage: 100 MG, UNKNOWN
     Route: 048
  6. PROPOFOL. [Suspect]
     Active Substance: PROPOFOL
     Indication: ENDOTRACHEAL INTUBATION
  7. ACETYLCYSTEINE. [Suspect]
     Active Substance: ACETYLCYSTEINE
     Indication: TOXICITY TO VARIOUS AGENTS
     Dosage: UNK
     Route: 065
  8. TRAMADOL HYDROCHLORIDE. [Suspect]
     Active Substance: TRAMADOL HYDROCHLORIDE
     Indication: PAIN
  9. OXYCODONE HYDROCHLORIDE. [Suspect]
     Active Substance: OXYCODONE HYDROCHLORIDE
     Indication: ANALGESIC THERAPY
     Dosage: 5 MG, UNKNOWN
     Route: 048
  10. OXYCODONE HYDROCHLORIDE. [Suspect]
     Active Substance: OXYCODONE HYDROCHLORIDE
     Indication: PAIN
  11. PIRITRAMIDE [Suspect]
     Active Substance: PIRITRAMIDE
     Indication: ANALGESIC THERAPY
     Dosage: 20 MG, UNKNOWN
     Route: 042
  12. PIRITRAMIDE [Suspect]
     Active Substance: PIRITRAMIDE
     Indication: PAIN

REACTIONS (12)
  - Hypoventilation [Recovered/Resolved]
  - Hypercapnia [Recovered/Resolved]
  - Pneumonia aspiration [Recovered/Resolved]
  - Poisoning [Unknown]
  - Ammonia increased [Recovered/Resolved]
  - Congenital central hypoventilation syndrome [Recovering/Resolving]
  - Generalised tonic-clonic seizure [Recovered/Resolved]
  - Respiratory failure [Recovered/Resolved]
  - Adverse drug reaction [Unknown]
  - Hypoxia [Recovered/Resolved]
  - Loss of consciousness [Recovered/Resolved]
  - Coma [Recovered/Resolved]
